FAERS Safety Report 15953168 (Version 1)
Quarter: 2019Q1

REPORT INFORMATION
  Report Type: Spontaneous
  Country: US (occurrence: US)
  Receive Date: 20190211
  Receipt Date: 20190211
  Transmission Date: 20190417
  Serious: No
  Sender: FDA-Public Use
  Company Number: US-PFIZER INC-2019051326

PATIENT
  Age: 75 Year
  Sex: Female

DRUGS (15)
  1. CIPROFLOXACIN. [Suspect]
     Active Substance: CIPROFLOXACIN
     Dosage: UNK
  2. POLYMYXIN B SULFATE. [Suspect]
     Active Substance: POLYMYXIN B SULFATE
     Dosage: UNK
  3. CILOXAN [Suspect]
     Active Substance: CIPROFLOXACIN HYDROCHLORIDE
     Dosage: UNK
  4. AZITHROMYCIN ANHYDROUS. [Suspect]
     Active Substance: AZITHROMYCIN ANHYDROUS
     Dosage: UNK
  5. BACITRACIN. [Suspect]
     Active Substance: BACITRACIN
     Dosage: UNK
  6. CLINDAMYCIN HCL [Suspect]
     Active Substance: CLINDAMYCIN HYDROCHLORIDE
     Dosage: UNK
  7. PROZAC [Suspect]
     Active Substance: FLUOXETINE HYDROCHLORIDE
     Dosage: UNK
  8. CEFACLOR. [Suspect]
     Active Substance: CEFACLOR
     Dosage: UNK
  9. BACITRACIN W/NEOMYCIN/POLYMYXIN B [Suspect]
     Active Substance: BACITRACIN\NEOMYCIN\POLYMYXIN B
     Dosage: UNK
  10. NEOMYCIN SULFATE. [Suspect]
     Active Substance: NEOMYCIN SULFATE
     Dosage: UNK
  11. NEOSPORIN [Suspect]
     Active Substance: BACITRACIN ZINC\NEOMYCIN SULFATE\POLYMYXIN B SULFATE
     Dosage: UNK
  12. FLUOXETINE HYDROCHLORIDE. [Suspect]
     Active Substance: FLUOXETINE HYDROCHLORIDE
     Dosage: UNK
  13. BACITRACIN ZINC. [Suspect]
     Active Substance: BACITRACIN ZINC
     Dosage: UNK
  14. CECLOR [Suspect]
     Active Substance: CEFACLOR
     Dosage: UNK
  15. CODEINE [Suspect]
     Active Substance: CODEINE
     Dosage: UNK

REACTIONS (1)
  - Drug hypersensitivity [Unknown]
